FAERS Safety Report 20864629 (Version 3)
Quarter: 2024Q3

REPORT INFORMATION
  Report Type: Spontaneous
  Country: US (occurrence: US)
  Receive Date: 20220524
  Receipt Date: 20240801
  Transmission Date: 20241016
  Serious: Yes (Hospitalization)
  Sender: ROCHE
  Company Number: US-ROCHE-3102033

PATIENT
  Sex: Female

DRUGS (1)
  1. OCREVUS [Suspect]
     Active Substance: OCRELIZUMAB
     Indication: Multiple sclerosis
     Dosage: STRENGTH 300 MG/10ML
     Route: 042
     Dates: start: 202201

REACTIONS (3)
  - Hemiplegia [Unknown]
  - Muscular weakness [Unknown]
  - Gait disturbance [Unknown]
